FAERS Safety Report 25167162 (Version 1)
Quarter: 2025Q2

REPORT INFORMATION
  Report Type: Report from Study
  Country: US (occurrence: US)
  Receive Date: 20250407
  Receipt Date: 20250407
  Transmission Date: 20250717
  Serious: Yes (Other)
  Sender: VERONA PHARMA
  Company Number: US-VERONA PHARMA-VER-002684

PATIENT
  Sex: Male

DRUGS (1)
  1. OHTUVAYRE [Suspect]
     Active Substance: ENSIFENTRINE
     Indication: Chronic obstructive pulmonary disease
     Dosage: 3 MILLIGRAM, BID
     Dates: start: 202502, end: 202503

REACTIONS (9)
  - Hallucination, visual [Unknown]
  - Heart rate decreased [Recovered/Resolved]
  - Dyspnoea [Recovered/Resolved]
  - Panic reaction [Recovered/Resolved]
  - Insomnia [Unknown]
  - Diarrhoea [Unknown]
  - Product storage error [Unknown]
  - Product colour issue [Unknown]
  - Product deposit [Unknown]
